FAERS Safety Report 16659486 (Version 1)
Quarter: 2019Q3

REPORT INFORMATION
  Report Type: Spontaneous
  Country: US (occurrence: US)
  Receive Date: 20190802
  Receipt Date: 20190802
  Transmission Date: 20191004
  Serious: Yes (Hospitalization, Other)
  Sender: FDA-Public Use
  Company Number: US-PACIRA-201900136

PATIENT
  Age: 61 Year
  Sex: Male
  Weight: 70 kg

DRUGS (2)
  1. MARCAINE [Suspect]
     Active Substance: BUPIVACAINE HYDROCHLORIDE
     Indication: INGUINAL HERNIA REPAIR
     Dates: start: 20190204, end: 20190204
  2. EXPAREL [Suspect]
     Active Substance: BUPIVACAINE
     Indication: INGUINAL HERNIA REPAIR
     Dosage: INJECTED WITH 1/2 % MARCAINE
     Dates: start: 20190204, end: 20190204

REACTIONS (6)
  - Liver function test increased [Unknown]
  - Inflammatory marker increased [Unknown]
  - White blood cell count increased [Unknown]
  - Syncope [Recovered/Resolved]
  - Subcutaneous emphysema [Recovered/Resolved]
  - Injection site reaction [Recovered/Resolved]

NARRATIVE: CASE EVENT DATE: 20190206
